FAERS Safety Report 19308826 (Version 1)
Quarter: 2021Q2

REPORT INFORMATION
  Report Type: Spontaneous
  Country: CN (occurrence: CN)
  Receive Date: 20210526
  Receipt Date: 20210526
  Transmission Date: 20210717
  Serious: Yes (Other)
  Sender: FDA-Public Use
  Company Number: CN-BAXTER-2021BAX012345

PATIENT
  Age: 63 Year
  Sex: Male
  Weight: 37 kg

DRUGS (10)
  1. 0.9% SODIUM CHLORIDE INJECTION [Suspect]
     Active Substance: SODIUM CHLORIDE
     Dosage: 0.9% SODIUM CHLORIDE 500 ML + ETOPOSIDE 75 MG, D1?D2
     Route: 041
     Dates: start: 20210415, end: 20210416
  2. ETOPOSIDE. [Suspect]
     Active Substance: ETOPOSIDE
     Indication: PERIPHERAL T-CELL LYMPHOMA UNSPECIFIED
     Dosage: ETOPOSIDE 75 MG + 0.9% SODIUM CHLORIDE 500 ML, D1?D2
     Route: 041
     Dates: start: 20210415, end: 20210416
  3. ENDOXAN [Suspect]
     Active Substance: CYCLOPHOSPHAMIDE
     Dosage: CYCLOPHOSPHAMIDE + 0.9% SODIUM CHLORIDE (DOSE RE?INTRODUCED)
     Route: 041
  4. 0.9% SODIUM CHLORIDE INJECTION [Suspect]
     Active Substance: SODIUM CHLORIDE
     Indication: MEDICATION DILUTION
     Dosage: 0.9% SODIUM CHLORIDE 100 ML + CYCLOPHOSPHAMIDE 0.9 G, D1
     Route: 041
     Dates: start: 20210415, end: 20210415
  5. 0.9% SODIUM CHLORIDE INJECTION [Suspect]
     Active Substance: SODIUM CHLORIDE
     Dosage: 0.9% SODIUM CHLORIDE + CYCLOPHOSPHAMIDE (DOSE RE?INTRODUCED)
     Route: 041
  6. DOXORUBICIN LIPOSOME [Suspect]
     Active Substance: DOXORUBICIN
     Indication: PERIPHERAL T-CELL LYMPHOMA UNSPECIFIED
     Dosage: DOXORUBICIN LIPOSOME 30 MG + 5% GLUCOSE 250 ML, D1
     Route: 041
     Dates: start: 20210415, end: 20210415
  7. 0.9% SODIUM CHLORIDE INJECTION [Suspect]
     Active Substance: SODIUM CHLORIDE
     Dosage: 0.9% SODIUM CHLORIDE 100 ML + VINCRISTINE 1.8 MG, D1
     Route: 041
     Dates: start: 20210415, end: 20210415
  8. 5% GLUCOSE  INJECTION [Suspect]
     Active Substance: DEXTROSE
     Indication: MEDICATION DILUTION
     Dosage: 5% GLUCOSE 250 ML + DOXORUBICIN LIPOSOME 30 MG, D1
     Route: 041
     Dates: start: 20210415, end: 20210415
  9. VINCRISTINE [Suspect]
     Active Substance: VINCRISTINE
     Indication: PERIPHERAL T-CELL LYMPHOMA UNSPECIFIED
     Dosage: VINCRISTINE 1.8 MG + 0.9% SODIUM CHLORIDE 100 ML, D1
     Route: 041
     Dates: start: 20210415, end: 20210415
  10. ENDOXAN [Suspect]
     Active Substance: CYCLOPHOSPHAMIDE
     Indication: PERIPHERAL T-CELL LYMPHOMA UNSPECIFIED
     Dosage: CYCLOPHOSPHAMIDE 0.9 G + 0.9% SODIUM CHLORIDE 100 ML, D1
     Route: 041
     Dates: start: 20210415, end: 20210415

REACTIONS (1)
  - Pancytopenia [Recovering/Resolving]

NARRATIVE: CASE EVENT DATE: 20210423
